FAERS Safety Report 7969624-9 (Version None)
Quarter: 2011Q4

REPORT INFORMATION
  Report Type: 
  Country: None (occurrence: None)
  Receive Date: 20111208
  Receipt Date: 20111130
  Transmission Date: 20120403
  Serious: Yes (Hospitalization)
  Sender: FDA-Public Use
  Company Number: 1000025858

PATIENT
  Sex: Male

DRUGS (15)
  1. METOPROLOL ER (METOPROLOL ER)(METOPROLOL ER) [Concomitant]
  2. SIMVASTATIN [Concomitant]
  3. SERTRALINE HYDROCHLORIDE [Concomitant]
  4. DONEPEZIL (DONEPEZIL)(DONEPEZIL) [Concomitant]
  5. CARBIDOPA LEVODOPA (SINEMET)(SINEMET) [Concomitant]
  6. ASPIRIN [Concomitant]
  7. VITAMIN D3 (COLECALCIFEROL)(COLECALCIFEROL) [Concomitant]
  8. POTASSIUM (POTASSIUM)(POTASSIUM) [Concomitant]
  9. MIRTAZAPINE [Concomitant]
  10. ALBUTEROL (ALBUTEROL)(ALBUTEROL) [Concomitant]
  11. COMBIVENT (COMBIVENT)(COMBIVENT) [Concomitant]
  12. FINASTERIDE (FINASTERIDE) (FINASTERIDE) [Concomitant]
  13. DALIRESP [Suspect]
     Indication: CHRONIC OBSTRUCTIVE PULMONARY DISEASE
     Dosage: 500 MCG (500 MCG, 1 IN 1 D),ORAL
     Route: 048
     Dates: start: 20111025, end: 20111107
  14. SYMBICORT(BUDESONIDE W/FORMOTEROL FUMARATE)(BUDESONIDE W/FORMOTEROL FU [Concomitant]
  15. ASTEPRO (AZELASTINE HYDROCHLORIDE) (AZELASTINE HYDROCHLORIDE) [Concomitant]

REACTIONS (1)
  - CONVULSION [None]
